FAERS Safety Report 7029560-1 (Version None)
Quarter: 2010Q4

REPORT INFORMATION
  Report Type: 
  Country: None (occurrence: None)
  Receive Date: 20101005
  Receipt Date: 20100928
  Transmission Date: 20110411
  Serious: Yes (Other)
  Sender: FDA-Public Use
  Company Number: US-AMGEN-KDL441562

PATIENT
  Sex: Female

DRUGS (1)
  1. PROLIA [Suspect]
     Indication: OSTEOPOROSIS POSTMENOPAUSAL
     Dates: start: 20100908

REACTIONS (10)
  - ARTHRALGIA [None]
  - BACK PAIN [None]
  - COMPRESSION FRACTURE [None]
  - DIZZINESS [None]
  - DRY SKIN [None]
  - INSOMNIA [None]
  - MYALGIA [None]
  - NERVOUSNESS [None]
  - OSTEONECROSIS [None]
  - PARAESTHESIA [None]
